FAERS Safety Report 15103483 (Version 1)
Quarter: 2018Q3

REPORT INFORMATION
  Report Type: Spontaneous
  Country: FR (occurrence: FR)
  Receive Date: 20180703
  Receipt Date: 20180703
  Transmission Date: 20181010
  Serious: Yes (Life-Threatening)
  Sender: FDA-Public Use
  Company Number: FR-PFIZER INC-2018265464

PATIENT
  Age: 53 Year
  Sex: Female

DRUGS (12)
  1. CEFIXIME. [Suspect]
     Active Substance: CEFIXIME
     Indication: ALLERGY TEST
     Dosage: 176 MG, SINGLE
     Route: 048
     Dates: start: 20180328, end: 20180328
  2. SERESTA [Concomitant]
     Active Substance: OXAZEPAM
     Dosage: UNK
  3. CEFOTAXIME SODIUM [Suspect]
     Active Substance: CEFOTAXIME SODIUM
     Indication: ALLERGY TEST
     Dosage: UNK
     Route: 023
     Dates: start: 20180328, end: 20180328
  4. PENICILLINE G SODIQUE [Suspect]
     Active Substance: PENICILLIN G SODIUM
     Indication: ALLERGY TEST
     Dosage: UNK
     Route: 023
     Dates: start: 20180328, end: 20180328
  5. CEFAZOLINE [Suspect]
     Active Substance: CEFAZOLIN SODIUM
     Indication: ALLERGY TEST
     Dosage: UNK
     Route: 023
     Dates: start: 20180328, end: 20180328
  6. PIPERACILLIN/TAZOBACTAM [Suspect]
     Active Substance: PIPERACILLIN SODIUM\TAZOBACTAM SODIUM
     Indication: ALLERGY TEST
     Dosage: UNK
     Route: 023
     Dates: start: 20180328, end: 20180328
  7. AMOXICILLIN. [Suspect]
     Active Substance: AMOXICILLIN
     Indication: ALLERGY TEST
     Dosage: UNK
     Route: 023
     Dates: start: 20180328, end: 20180328
  8. FLUOXETIN [Concomitant]
     Active Substance: FLUOXETINE HYDROCHLORIDE
     Dosage: UNK
  9. CEFUROXIME. [Suspect]
     Active Substance: CEFUROXIME
     Indication: ALLERGY TEST
     Dosage: UNK
     Route: 023
     Dates: start: 20180328, end: 20180328
  10. CLOXACILLIN [Suspect]
     Active Substance: CLOXACILLIN
     Indication: ALLERGY TEST
     Dosage: UNK
     Route: 023
     Dates: start: 20180328, end: 20180328
  11. CEFTRIAXONE SODIUM. [Suspect]
     Active Substance: CEFTRIAXONE SODIUM
     Indication: ALLERGY TEST
     Dosage: UNK
     Route: 023
     Dates: start: 20180328, end: 20180328
  12. MONOCRIXO [Concomitant]
     Active Substance: TRAMADOL HYDROCHLORIDE
     Dosage: UNK

REACTIONS (1)
  - Angioedema [Recovered/Resolved]

NARRATIVE: CASE EVENT DATE: 20180328
